FAERS Safety Report 19831346 (Version 1)
Quarter: 2021Q3

REPORT INFORMATION
  Report Type: Spontaneous
  Country: NL (occurrence: NL)
  Receive Date: 20210915
  Receipt Date: 20210915
  Transmission Date: 20211014
  Serious: Yes (Other)
  Sender: FDA-Public Use
  Company Number: NL-SUN PHARMACEUTICAL INDUSTRIES LTD-2021RR-310664

PATIENT
  Age: 86 Year
  Sex: Male
  Weight: 73 kg

DRUGS (12)
  1. ESOMEPRAZOL TABLET MSR 40MG / NEXIUM TABLET MSR 40MGNEXIUM TABLET M... [Concomitant]
     Indication: PRODUCT USED FOR UNKNOWN INDICATION
     Dosage: STOMACH?RESISTANT TABLET, 40 MG (MILLIGRAMS)
     Route: 065
  2. SERTRALINE TABLET  50MG / BRAND NAME NOT SPECIFIEDSERTRALINE TABLET... [Concomitant]
     Indication: PRODUCT USED FOR UNKNOWN INDICATION
     Dosage: TABLET, 50 MG (MILLIGRAM)
     Route: 065
  3. CYANOCOBALAMINE TABLET 1000UG / BRAND NAME NOT SPECIFIEDCYANOCOBALA... [Concomitant]
     Indication: PRODUCT USED FOR UNKNOWN INDICATION
     Dosage: TABLET, 1000 MICROG (MICROGRAM)
     Route: 065
  4. MACROGOL/ZOUTEN PDR V DRANK (MOVIC/MOLAX/LAXT/GEN) / MOVICOLON POED... [Concomitant]
     Indication: PRODUCT USED FOR UNKNOWN INDICATION
     Dosage: POWDER FOR BEVERAGE
     Route: 065
  5. NATRIUMCHLORIDE INFVLST   9MG/ML / BRAND NAME NOT SPECIFIEDNATRIUMC... [Concomitant]
     Indication: PRODUCT USED FOR UNKNOWN INDICATION
     Dosage: INFUSION FLUID, 9 MG / ML (MILLIGRAMS PER MILLILITER)
     Route: 065
  6. TAMSULOSIN [Suspect]
     Active Substance: TAMSULOSIN
     Indication: URINARY RETENTION
     Dosage: 1X PER DAY 1 PIECE
     Route: 065
     Dates: start: 20210819, end: 20210820
  7. BISOPROLOL TABLET   2,5MG / BRAND NAME NOT SPECIFIEDBISOPROLOL TABL... [Concomitant]
     Indication: PRODUCT USED FOR UNKNOWN INDICATION
     Dosage: TABLET, 2,5 MG (MILLIGRAM)
     Route: 065
  8. COLECALCIFEROL TABLET   800IE / DIVISUN TABLET 800IEDIVISUN TABLET ... [Concomitant]
     Indication: PRODUCT USED FOR UNKNOWN INDICATION
     Dosage: TABLET, 800 UNITS
     Route: 065
  9. ISOSORBIDEMONONITRAAT CAPSULE MGA  25MG / MONO CEDOCARD RETARD CAPS... [Concomitant]
     Indication: PRODUCT USED FOR UNKNOWN INDICATION
     Dosage: CONTROLLED RELEASE CAPSULE, 25 MG (MILLIGRAM)
     Route: 065
  10. MIRTAZAPINE SMELTTABLET 15MG / BRAND NAME NOT SPECIFIEDMIRTAZAPINE ... [Concomitant]
     Indication: PRODUCT USED FOR UNKNOWN INDICATION
     Dosage: ORODISPERSIBLE TABLET, 15 MG (MILLIGRAMS)
     Route: 065
  11. QUETIAPINE TABLET  12,5MG / BRAND NAME NOT SPECIFIEDQUETIAPINE TABL... [Concomitant]
     Indication: PRODUCT USED FOR UNKNOWN INDICATION
     Dosage: TABLET, 12,5 MG (MILLIGRAM)
     Route: 065
  12. RIVAROXABAN TABLET 15MG / XARELTO TABLET FILMOMHULD 15MGXARELTO TAB... [Concomitant]
     Indication: PRODUCT USED FOR UNKNOWN INDICATION
     Dosage: TABLET, 15 MG (MILLIGRAM)
     Route: 065

REACTIONS (3)
  - Orthostatic hypotension [Recovering/Resolving]
  - Nightmare [Recovered/Resolved]
  - Psychotic symptom [Recovered/Resolved]

NARRATIVE: CASE EVENT DATE: 20210820
